FAERS Safety Report 8119364-0 (Version None)
Quarter: 2012Q1

REPORT INFORMATION
  Report Type: 
  Country: None (occurrence: None)
  Receive Date: 20120207
  Receipt Date: 20120130
  Transmission Date: 20120608
  Serious: Yes (Other)
  Sender: FDA-Public Use
  Company Number: US-CELGENEUS-163-21880-12013243

PATIENT
  Sex: Female

DRUGS (11)
  1. VELCADE [Concomitant]
     Indication: MULTIPLE MYELOMA
     Dosage: 1.3
     Route: 065
     Dates: start: 20110610, end: 20110919
  2. DEXAMETHASONE [Concomitant]
     Route: 065
     Dates: start: 20080306, end: 20081017
  3. REVLIMID [Suspect]
     Indication: MULTIPLE MYELOMA
     Dosage: 25 MILLIGRAM
     Route: 048
     Dates: start: 20110610, end: 20110919
  4. REVLIMID [Suspect]
     Indication: PLASMACYTOMA
     Dosage: 25 MILLIGRAM
     Route: 048
     Dates: start: 20111129
  5. THALOMID [Suspect]
     Route: 048
     Dates: start: 20080223, end: 20080226
  6. REVLIMID [Suspect]
     Route: 048
     Dates: start: 20080306, end: 20081017
  7. VELCADE [Concomitant]
     Route: 065
     Dates: start: 20080223, end: 20080226
  8. DEXAMETHASONE [Concomitant]
     Dosage: 40 MILLIGRAM
     Route: 048
     Dates: start: 20111129
  9. THALOMID [Suspect]
     Indication: PLASMACYTOMA
     Dosage: 100 MILLIGRAM
     Route: 048
     Dates: start: 20110307
  10. DEXAMETHASONE [Concomitant]
     Indication: MULTIPLE MYELOMA
     Dosage: 20 MILLIGRAM
     Route: 065
     Dates: start: 20110610, end: 20110919
  11. THALOMID [Suspect]
     Indication: MULTIPLE MYELOMA
     Dosage: 50 MILLIGRAM
     Route: 048
     Dates: start: 20110214

REACTIONS (1)
  - THYROID CANCER [None]
